FAERS Safety Report 10674072 (Version 1)
Quarter: 2014Q4

REPORT INFORMATION
  Report Type: Spontaneous
  Country: US (occurrence: None)
  Receive Date: 20141223
  Receipt Date: 20141223
  Transmission Date: 20150529
  Serious: Yes (Hospitalization)
  Sender: FDA-Public Use
  Company Number: None

PATIENT
  Age: 88 Year
  Sex: Female
  Weight: 61.24 kg

DRUGS (4)
  1. FOSAMAX [Suspect]
     Active Substance: ALENDRONATE SODIUM
     Indication: OSTEOPOROSIS
     Dosage: 70 MGM, 1, 1/WEEK, BY MOUTH
     Route: 048
     Dates: start: 201407, end: 201407
  2. AMLODIPINE [Concomitant]
     Active Substance: AMLODIPINE BESYLATE
  3. LASIX [Concomitant]
     Active Substance: FUROSEMIDE
  4. MULT VITAMINS [Concomitant]

REACTIONS (2)
  - Hallucinations, mixed [None]
  - Delirium [None]

NARRATIVE: CASE EVENT DATE: 201407
